FAERS Safety Report 8584416-8 (Version None)
Quarter: 2012Q3

REPORT INFORMATION
  Report Type: 
  Country: None (occurrence: None)
  Receive Date: 20120810
  Receipt Date: 20120802
  Transmission Date: 20120928
  Serious: Yes (Hospitalization)
  Sender: FDA-Public Use
  Company Number: JP-BRISTOL-MYERS SQUIBB COMPANY-16703217

PATIENT
  Age: 38 Year
  Sex: Female

DRUGS (2)
  1. ABILIFY [Suspect]
     Indication: MANIA
     Route: 048
     Dates: start: 20120501, end: 20120611
  2. ABILIFY [Suspect]
     Indication: MANIA
     Route: 048
     Dates: start: 20120501, end: 20120611

REACTIONS (2)
  - PYREXIA [None]
  - STUPOR [None]
